FAERS Safety Report 6000591-3 (Version None)
Quarter: 2008Q4

REPORT INFORMATION
  Report Type: 
  Country: None (occurrence: None)
  Receive Date: 20081215
  Receipt Date: 20081203
  Transmission Date: 20090506
  Serious: Yes (Hospitalization)
  Sender: FDA-Public Use
  Company Number: DE-ROCHE-600765

PATIENT
  Sex: Male
  Weight: 53.5 kg

DRUGS (1)
  1. CAPECITABINE [Suspect]
     Dosage: DOSAGE FORM REPORTED AS 500 MG TABLETS. TEMPORARILY INTERRUPTED.
     Route: 048
     Dates: start: 20081025, end: 20081121

REACTIONS (1)
  - PANCREATITIS [None]
